FAERS Safety Report 4586392-1 (Version None)
Quarter: 2005Q1

REPORT INFORMATION
  Report Type: 
  Country: None (occurrence: None)
  Receive Date: 20050125
  Receipt Date: 20040909
  Transmission Date: 20050727
  Serious: No
  Sender: FDA-Public Use
  Company Number: USA040977847

PATIENT
  Age: 67 Year
  Sex: Female

DRUGS (5)
  1. FORTEO [Suspect]
     Indication: OSTEOPOROSIS
     Dosage: 20 UG/1 DAY
     Dates: start: 20040701, end: 20040819
  2. ACYCLOVIR (ACICLOVIR EG) [Concomitant]
  3. PRILOSEC [Concomitant]
  4. VITAMINS [Concomitant]
  5. CALCIUM GLUCONATE [Concomitant]

REACTIONS (7)
  - BURNING SENSATION [None]
  - DECREASED APPETITE [None]
  - DYSGEUSIA [None]
  - DYSPEPSIA [None]
  - NASOPHARYNGITIS [None]
  - NAUSEA [None]
  - PAROSMIA [None]
